FAERS Safety Report 10077957 (Version 1)
Quarter: 2014Q2

REPORT INFORMATION
  Report Type: Spontaneous
  Country: CN (occurrence: CN)
  Receive Date: 20140415
  Receipt Date: 20140415
  Transmission Date: 20141212
  Serious: Yes (Other)
  Sender: FDA-Public Use
  Company Number: CN-009507513-1404CHN005871

PATIENT
  Age: 70 Year
  Sex: Female
  Weight: 66 kg

DRUGS (2)
  1. TIENAM [Suspect]
     Indication: LUNG INFECTION
     Dosage: 1 G, QD
     Route: 041
     Dates: start: 20130219, end: 20130219
  2. AMINOPHYLLINE [Concomitant]
     Indication: LUNG INFECTION
     Dosage: 0.5 G, QD
     Route: 041
     Dates: start: 20130215, end: 20130220

REACTIONS (1)
  - Epilepsy [Recovering/Resolving]
